FAERS Safety Report 10144807 (Version 1)
Quarter: 2014Q2

REPORT INFORMATION
  Report Type: Spontaneous
  Country: US (occurrence: US)
  Receive Date: 20140430
  Receipt Date: 20140430
  Transmission Date: 20141212
  Serious: No
  Sender: FDA-Public Use
  Company Number: US-SA-2014SA001645

PATIENT
  Age: 65 Year
  Sex: Female
  Weight: 72 kg

DRUGS (4)
  1. LOVENOX [Suspect]
     Indication: THROMBOSIS
     Route: 065
     Dates: start: 20131029
  2. LOVENOX [Suspect]
     Indication: THROMBOSIS
     Route: 065
     Dates: start: 20131029
  3. TAXOL [Concomitant]
     Indication: NEOPLASM MALIGNANT
     Route: 065
     Dates: start: 20130111
  4. CITALOPRAM [Concomitant]
     Indication: DEPRESSION
     Route: 065

REACTIONS (2)
  - Injection site discolouration [Not Recovered/Not Resolved]
  - Injection site bruising [Recovered/Resolved]
